FAERS Safety Report 5747027-5 (Version None)
Quarter: 2008Q2

REPORT INFORMATION
  Report Type: 
  Country: None (occurrence: None)
  Receive Date: 20080520
  Receipt Date: 20080508
  Transmission Date: 20081010
  Serious: Yes (Other)
  Sender: FDA-Public Use
  Company Number: 1-16142716/MED-08101

PATIENT
  Age: 82 Year
  Sex: Female

DRUGS (3)
  1. BACTRIM [Suspect]
     Indication: URINARY TRACT INFECTION
     Dosage: ORAL
     Route: 048
     Dates: start: 20071012
  2. BACLOFEN [Concomitant]
  3. WARFARIN SODIUM [Concomitant]

REACTIONS (2)
  - CONVULSION [None]
  - HALLUCINATION [None]
